FAERS Safety Report 9778345 (Version 1)
Quarter: 2013Q4

REPORT INFORMATION
  Report Type: Spontaneous
  Country: DK (occurrence: DK)
  Receive Date: 20131223
  Receipt Date: 20131223
  Transmission Date: 20140711
  Serious: Yes (Hospitalization)
  Sender: FDA-Public Use
  Company Number: PHHY2013DK147183

PATIENT
  Age: 11 Year
  Sex: Male

DRUGS (11)
  1. VALPROIC ACID [Suspect]
     Indication: CONVULSION
  2. DIAZEPAM [Suspect]
     Indication: CONVULSION
  3. PROPOFOL [Suspect]
     Indication: SEDATION
  4. MIDAZOLAM [Suspect]
     Dosage: 25 MG/H
  5. TOPIRAMATE [Suspect]
     Indication: CONVULSION
  6. LEVETIRACETAM [Suspect]
     Indication: CONVULSION
  7. PHENYTOIN [Suspect]
     Indication: CONVULSION
  8. VIGABATRIN [Suspect]
     Indication: CONVULSION
  9. PYRIDOXINE [Suspect]
     Indication: CONVULSION
  10. PENTOBARBITAL [Suspect]
     Indication: CONVULSION
     Route: 042
  11. PHENOBARBITAL [Concomitant]
     Indication: CONVULSION
     Dosage: 50 MG/H

REACTIONS (3)
  - Oedema [Unknown]
  - Status epilepticus [Unknown]
  - Drug ineffective [Unknown]
